FAERS Safety Report 4925925-X (Version None)
Quarter: 2006Q1

REPORT INFORMATION
  Report Type: 
  Country: None (occurrence: None)
  Receive Date: 20060228
  Receipt Date: 20050415
  Transmission Date: 20060701
  Serious: No
  Sender: FDA-Public Use
  Company Number: US-GLAXOSMITHKLINE-A0554404A

PATIENT
  Age: 55 Year
  Sex: Female

DRUGS (5)
  1. LAMICTAL [Suspect]
     Indication: BIPOLAR DISORDER
     Dosage: 12.5MG TWICE PER DAY
     Route: 048
  2. SEROQUEL [Concomitant]
  3. CLONOPIN [Concomitant]
  4. DEMADEX [Concomitant]
  5. NORVASC [Concomitant]

REACTIONS (1)
  - RASH [None]
